FAERS Safety Report 10714743 (Version 2)
Quarter: 2015Q1

REPORT INFORMATION
  Report Type: Spontaneous
  Country: JP (occurrence: JP)
  Receive Date: 20150115
  Receipt Date: 20150121
  Transmission Date: 20150721
  Serious: Yes (Hospitalization)
  Sender: FDA-Public Use
  Company Number: JP-BAXTER-2015BAX000924

PATIENT
  Age: 80 Year
  Sex: Female
  Weight: 42.2 kg

DRUGS (8)
  1. ROCURONIUM BROMIDE. [Suspect]
     Active Substance: ROCURONIUM BROMIDE
     Indication: ARTHROSCOPIC SURGERY
     Route: 065
     Dates: start: 20150107, end: 20150107
  2. REMIFENTANIL HYDROCHLORIDE [Suspect]
     Active Substance: REMIFENTANIL HYDROCHLORIDE
     Indication: ARTHROSCOPIC SURGERY
     Route: 065
     Dates: start: 20150107, end: 20150107
  3. SUGAMMADEX SODIUM [Suspect]
     Active Substance: SUGAMMADEX SODIUM
     Indication: ARTHROSCOPIC SURGERY
     Route: 065
     Dates: start: 20150107, end: 20150107
  4. DEXAMETHASONE SODIUM PHOSPHATE. [Suspect]
     Active Substance: DEXAMETHASONE SODIUM PHOSPHATE
     Indication: ARTHROSCOPIC SURGERY
     Route: 065
     Dates: start: 20150107, end: 20150107
  5. ARTHROMATIC IRRIGATION [Suspect]
     Active Substance: CALCIUM CHLORIDE\POTASSIUM CHLORIDE\SODIUM CHLORIDE\SODIUM LACTATE
     Indication: ARTHROSCOPIC SURGERY
     Route: 014
     Dates: start: 20150107, end: 20150107
  6. PROPOFOL. [Suspect]
     Active Substance: PROPOFOL
     Indication: ARTHROSCOPIC SURGERY
     Route: 065
     Dates: start: 20150107, end: 20150107
  7. FENTANYL CITRATE. [Suspect]
     Active Substance: FENTANYL CITRATE
     Indication: ARTHROSCOPIC SURGERY
     Route: 065
     Dates: start: 20150107, end: 20150107
  8. FLURBIPROFEN AXETIL [Suspect]
     Active Substance: FLURBIPROFEN AXETIL
     Indication: ARTHROSCOPIC SURGERY
     Route: 065
     Dates: start: 20150107, end: 20150107

REACTIONS (2)
  - Pulmonary oedema [Recovered/Resolved]
  - Upper airway obstruction [Recovered/Resolved]

NARRATIVE: CASE EVENT DATE: 20150107
